FAERS Safety Report 11840796 (Version 1)
Quarter: 2015Q4

REPORT INFORMATION
  Report Type: Spontaneous
  Country: US (occurrence: US)
  Receive Date: 20151216
  Receipt Date: 20151216
  Transmission Date: 20160305
  Serious: Yes (Hospitalization, Disabling)
  Sender: FDA-Public Use
  Company Number: US-SA-2015SA209717

PATIENT
  Age: 60 Year
  Sex: Male

DRUGS (1)
  1. LANTUS [Suspect]
     Active Substance: INSULIN GLARGINE
     Indication: DIABETES MELLITUS
     Dosage: DOSE:55 UNIT(S)
     Route: 065

REACTIONS (9)
  - Dizziness [Unknown]
  - Chest discomfort [Unknown]
  - Memory impairment [Unknown]
  - Coronary artery occlusion [Unknown]
  - Plaque shift [Unknown]
  - Cerebrovascular accident [Unknown]
  - Disability [Unknown]
  - Feeling abnormal [Unknown]
  - Anxiety [Unknown]
